FAERS Safety Report 10566000 (Version 1)
Quarter: 2014Q4

REPORT INFORMATION
  Report Type: Spontaneous
  Country: NL (occurrence: NL)
  Receive Date: 20141105
  Receipt Date: 20141105
  Transmission Date: 20150529
  Serious: Yes (Hospitalization)
  Sender: FDA-Public Use
  Company Number: NL-BANPHARM-20143188

PATIENT
  Age: 47 Year

DRUGS (2)
  1. IBUPROFEN UNKNOWN PRODUCT [Suspect]
     Active Substance: IBUPROFEN
     Dosage: 300 MG, ONCE,
     Route: 048
  2. METFORMIN [Concomitant]
     Active Substance: METFORMIN HYDROCHLORIDE

REACTIONS (4)
  - Foot fracture [Recovered/Resolved]
  - Hypersensitivity [Recovered/Resolved]
  - Fall [Recovered/Resolved]
  - Spinal fracture [None]
